FAERS Safety Report 6958501-8 (Version None)
Quarter: 2010Q3

REPORT INFORMATION
  Report Type: 
  Country: None (occurrence: None)
  Receive Date: 20100827
  Receipt Date: 20100827
  Transmission Date: 20110219
  Serious: Yes (Disabling)
  Sender: FDA-Public Use
  Company Number: None

PATIENT
  Sex: Female
  Weight: 72.5755 kg

DRUGS (1)
  1. VITAMIN D CAP [Suspect]
     Indication: OSTEOPOROSIS
     Dosage: 50000 IU 1 PER WEEK
     Dates: start: 20100201, end: 20100801

REACTIONS (1)
  - ALOPECIA [None]
